FAERS Safety Report 5385232-0 (Version None)
Quarter: 2007Q3

REPORT INFORMATION
  Report Type: 
  Country: None (occurrence: None)
  Receive Date: 20070712
  Receipt Date: 20070702
  Transmission Date: 20080115
  Serious: Yes (Other)
  Sender: FDA-Public Use
  Company Number: JP-AMGEN-US233066

PATIENT
  Sex: Male
  Weight: 71 kg

DRUGS (5)
  1. ENBREL [Suspect]
     Indication: RHEUMATOID ARTHRITIS
     Route: 058
     Dates: start: 20061127
  2. KENACORT [Concomitant]
     Dosage: INJECTION; DOSE AND FREQUENCY NOT SPECIFIED
     Route: 065
  3. METHOTREXATE [Concomitant]
     Dosage: DOSE AND FREQUENCY NOT SPECIFIED
     Route: 048
  4. BUCILLAMINE [Concomitant]
     Dosage: TABLET; DOSE AND FREQUENCY NOT SPECIFIED
     Route: 048
  5. AURANOFIN [Concomitant]
     Dosage: TABLET; DOSE AND FREQUENCY NOT SPECIFIED
     Route: 048

REACTIONS (1)
  - PULMONARY TUBERCULOSIS [None]
